FAERS Safety Report 5749503-8 (Version None)
Quarter: 2008Q2

REPORT INFORMATION
  Report Type: 
  Country: None (occurrence: None)
  Receive Date: 20080527
  Receipt Date: 20080519
  Transmission Date: 20081010
  Serious: Yes (Hospitalization)
  Sender: FDA-Public Use
  Company Number: B0521017A

PATIENT
  Age: 71 Year
  Sex: Male

DRUGS (5)
  1. CLAMOXYL [Suspect]
     Dosage: 8G PER DAY
     Route: 048
     Dates: start: 20071210, end: 20080105
  2. AMOXICILLIN [Suspect]
     Dosage: 8G PER DAY
     Route: 042
     Dates: start: 20071203, end: 20071210
  3. GENTAMICIN [Suspect]
     Dosage: 160MG PER DAY
     Route: 042
     Dates: start: 20071203, end: 20071210
  4. LASILIX [Concomitant]
     Indication: DRUG USE FOR UNKNOWN INDICATION
     Dosage: 120MG PER DAY
     Route: 048
  5. CALCIPARINE [Concomitant]
     Indication: DRUG USE FOR UNKNOWN INDICATION
     Dosage: .5ML THREE TIMES PER DAY
     Route: 058
     Dates: start: 20071203, end: 20080115

REACTIONS (2)
  - RENAL FAILURE ACUTE [None]
  - RENAL TUBULAR NECROSIS [None]
